FAERS Safety Report 24260584 (Version 2)
Quarter: 2024Q3

REPORT INFORMATION
  Report Type: Spontaneous
  Country: US (occurrence: US)
  Receive Date: 20240828
  Receipt Date: 20240918
  Transmission Date: 20241016
  Serious: Yes (Other)
  Sender: BRISTOL MYERS SQUIBB
  Company Number: US-BRISTOL-MYERS SQUIBB COMPANY-2024-135287

PATIENT
  Age: 79 Year
  Sex: Male
  Weight: 70.76 kg

DRUGS (2)
  1. POMALYST [Suspect]
     Active Substance: POMALIDOMIDE
     Indication: Plasma cell myeloma
     Dosage: 1 CAPSULE DAILY FOR 21 DAYS, THEN 7 DAYS OFF/3 WKS ON 1 WK OFF
     Route: 048
     Dates: end: 202408
  2. POMALYST [Suspect]
     Active Substance: POMALIDOMIDE
     Dates: start: 20240820

REACTIONS (1)
  - Cardiac disorder [Recovered/Resolved]
